FAERS Safety Report 7768732-5 (Version None)
Quarter: 2011Q3

REPORT INFORMATION
  Report Type: 
  Country: None (occurrence: None)
  Receive Date: 20110922
  Receipt Date: 20110216
  Transmission Date: 20111222
  Serious: No
  Sender: FDA-Public Use
  Company Number: US-ASTRAZENECA-2011SE08920

PATIENT
  Age: 56 Year
  Sex: Male

DRUGS (1)
  1. SEROQUEL XR [Suspect]
     Dosage: 300 MG, HALF TABLET DAILY
     Route: 048

REACTIONS (3)
  - CIRCUMSTANCE OR INFORMATION CAPABLE OF LEADING TO MEDICATION ERROR [None]
  - DRUG PRESCRIBING ERROR [None]
  - ABNORMAL DREAMS [None]
